FAERS Safety Report 25015530 (Version 3)
Quarter: 2025Q1

REPORT INFORMATION
  Report Type: Spontaneous
  Country: FR (occurrence: FR)
  Receive Date: 20250227
  Receipt Date: 20250307
  Transmission Date: 20250409
  Serious: Yes (Disabling, Other)
  Sender: JAZZ
  Company Number: FR-JAZZ PHARMACEUTICALS-2025-FR-002889

PATIENT

DRUGS (10)
  1. CANNABIDIOL [Suspect]
     Active Substance: CANNABIDIOL
     Indication: Lennox-Gastaut syndrome
     Dates: start: 20200930, end: 202402
  2. CANNABIDIOL [Suspect]
     Active Substance: CANNABIDIOL
     Dosage: 5.63 MILLILITER, BID
     Dates: start: 202402, end: 20250107
  3. CANNABIDIOL [Suspect]
     Active Substance: CANNABIDIOL
     Dates: start: 20240930
  4. CANNABIDIOL [Suspect]
     Active Substance: CANNABIDIOL
     Dosage: 6.8 MILLILITER, BID
     Dates: start: 20250107
  5. CLOBAZAM [Concomitant]
     Active Substance: CLOBAZAM
     Indication: Product used for unknown indication
     Dosage: 5 MILLIGRAM, BID MORNING AND AT 4 PM EVERY DAY
  6. ZOLOFT [Concomitant]
     Active Substance: SERTRALINE HYDROCHLORIDE
     Indication: Product used for unknown indication
  7. VITAMINS [Concomitant]
     Active Substance: VITAMINS
     Indication: Product used for unknown indication
     Dosage: 25 DROPS, QD
  8. LAMICTAL [Concomitant]
     Active Substance: LAMOTRIGINE
     Indication: Product used for unknown indication
  9. VALPROATE SODIUM [Concomitant]
     Active Substance: VALPROATE SODIUM
     Indication: Product used for unknown indication
  10. RIVOTRIL [Concomitant]
     Active Substance: CLONAZEPAM
     Indication: Product used for unknown indication
     Dosage: 10 DROPS IN THE MORNING, 20 DROPS IN THE EVENING

REACTIONS (4)
  - Sexually inappropriate behaviour [Not Recovered/Not Resolved]
  - Seizure [Unknown]
  - Weight increased [Unknown]
  - Drug ineffective [Unknown]

NARRATIVE: CASE EVENT DATE: 20240101
